FAERS Safety Report 16140750 (Version 6)
Quarter: 2020Q1

REPORT INFORMATION
  Report Type: Report from Study
  Country: ES (occurrence: ES)
  Receive Date: 20190401
  Receipt Date: 20200320
  Transmission Date: 20200409
  Serious: Yes (Other)
  Sender: FDA-Public Use
  Company Number: ES-BAYER-2019-062683

PATIENT
  Age: 50 Year
  Sex: Female

DRUGS (2)
  1. BETAFERON [Suspect]
     Active Substance: INTERFERON BETA-1B
     Indication: MULTIPLE SCLEROSIS
     Dosage: 1 ML, QOD
     Route: 058
     Dates: start: 20120928
  2. CLIPPER [Concomitant]
     Active Substance: BECLOMETHASONE DIPROPIONATE
     Indication: COLITIS MICROSCOPIC
     Dosage: 5 MG, QOD
     Dates: start: 202001

REACTIONS (5)
  - Cytomegalovirus test positive [Recovered/Resolved]
  - Colitis [Recovered/Resolved]
  - Cellulitis [Recovered/Resolved]
  - Injection site mass [Not Recovered/Not Resolved]
  - Vitamin D deficiency [Not Recovered/Not Resolved]

NARRATIVE: CASE EVENT DATE: 20120928
